FAERS Safety Report 9689314 (Version 2)
Quarter: 2013Q4

REPORT INFORMATION
  Report Type: Spontaneous
  Country: US (occurrence: US)
  Receive Date: 20131114
  Receipt Date: 20131209
  Transmission Date: 20140711
  Serious: Yes (Other)
  Sender: FDA-Public Use
  Company Number: US-PFIZER INC-2013324485

PATIENT
  Sex: Male

DRUGS (3)
  1. LYRICA [Suspect]
     Indication: PAIN
     Dosage: UNK
  2. LYRICA [Suspect]
     Dosage: 150 MG
  3. NEURONTIN [Suspect]
     Dosage: UNK

REACTIONS (3)
  - Convulsion [Unknown]
  - Panic attack [Unknown]
  - Drug ineffective [Unknown]
